FAERS Safety Report 6998782-8 (Version None)
Quarter: 2010Q3

REPORT INFORMATION
  Report Type: 
  Country: None (occurrence: None)
  Receive Date: 20100920
  Receipt Date: 20100127
  Transmission Date: 20110219
  Serious: No
  Sender: FDA-Public Use
  Company Number: US-ASTRAZENECA-2010SE03736

PATIENT
  Age: 51 Year
  Sex: Male
  Weight: 77.1 kg

DRUGS (5)
  1. SEROQUEL XR [Suspect]
     Indication: BIPOLAR DISORDER
     Route: 048
     Dates: start: 20091127
  2. PROPRANOLOL [Concomitant]
     Indication: HYPERTENSION
  3. PROPRANOLOL [Concomitant]
     Indication: PANIC ATTACK
  4. LAMICTAL [Concomitant]
  5. CLONAZEPAM [Concomitant]

REACTIONS (3)
  - FEELING ABNORMAL [None]
  - LETHARGY [None]
  - RESTLESSNESS [None]
